FAERS Safety Report 16809563 (Version 1)
Quarter: 2019Q3

REPORT INFORMATION
  Report Type: Spontaneous
  Country: FR (occurrence: FR)
  Receive Date: 20190916
  Receipt Date: 20190916
  Transmission Date: 20191005
  Serious: Yes (Other)
  Sender: FDA-Public Use
  Company Number: FR-MYLANLABS-2019M1085124

PATIENT
  Age: 24 Year
  Sex: Male

DRUGS (2)
  1. ATRACURIUM [Suspect]
     Active Substance: ATRACURIUM
     Indication: GENERAL ANAESTHESIA
     Dosage: 40 MILLIGRAM, TOTAL
     Route: 042
     Dates: start: 20190331, end: 20190331
  2. VANCOMYCIN [Suspect]
     Active Substance: VANCOMYCIN
     Indication: ANTIBIOTIC PROPHYLAXIS
     Dosage: 15 MILLIGRAM, TOTAL
     Route: 042
     Dates: start: 20190331, end: 20190331

REACTIONS (2)
  - Bronchospasm [Recovered/Resolved]
  - Injection site erythema [Recovered/Resolved]

NARRATIVE: CASE EVENT DATE: 20190331
